FAERS Safety Report 7136669-0 (Version None)
Quarter: 2010Q4

REPORT INFORMATION
  Report Type: 
  Country: None (occurrence: None)
  Receive Date: 20101206
  Receipt Date: 20070716
  Transmission Date: 20110411
  Serious: Yes (Death)
  Sender: FDA-Public Use
  Company Number: US-ACTELION-A-NJ2007-16998

PATIENT

DRUGS (17)
  1. ILOPROST INHALATION SOLUTION 2.5UG US [Suspect]
     Indication: PULMONARY ARTERIAL HYPERTENSION
     Dosage: 2.5 UG, 4 - 6 X PER DAY
     Route: 055
     Dates: start: 20070328, end: 20070725
  2. TRACLEER [Suspect]
     Indication: PULMONARY ARTERIAL HYPERTENSION
     Route: 048
     Dates: start: 20070621
  3. K-DUR [Concomitant]
  4. SODIUM BICARBONATE [Concomitant]
  5. SUCRALFATE [Concomitant]
  6. MAGNESIUM CHLORIDE ANHYDROUS [Concomitant]
  7. ESOMEPRAZOLE MAGNESIUM [Concomitant]
  8. DILTIAZEM HYDROCHLORIDE [Concomitant]
  9. FUROSEMIDE [Concomitant]
  10. SERTRALINE HYDROCHLORIDE [Concomitant]
  11. COLCHICINE [Concomitant]
  12. LEVOTHYROXINE SODIUM [Concomitant]
  13. METOCLOPRAMIDE HYDROCHLORIDE [Concomitant]
  14. TRAMADOL HYDROCHLORIDE [Concomitant]
  15. WARFARIN SODIUM [Concomitant]
  16. LISINOPRIL [Concomitant]
  17. TIZANIDINE HYDROCHLORIDE [Concomitant]

REACTIONS (4)
  - DEATH [None]
  - DIARRHOEA [None]
  - PAIN IN JAW [None]
  - VISION BLURRED [None]
